FAERS Safety Report 13540923 (Version 1)
Quarter: 2017Q2

REPORT INFORMATION
  Report Type: Spontaneous
  Country: US (occurrence: US)
  Receive Date: 20170512
  Receipt Date: 20170512
  Transmission Date: 20170830
  Serious: No
  Sender: FDA-Public Use
  Company Number: US-JUBILANT CADISTA PHARMACEUTICALS-2017JUB00056

PATIENT
  Age: 45 Year
  Sex: Female
  Weight: 83.9 kg

DRUGS (7)
  1. INSULIN [Concomitant]
     Active Substance: INSULIN NOS
  2. VALACYCLOVIR HYDROCHLORIDE. [Suspect]
     Active Substance: VALACYCLOVIR HYDROCHLORIDE
     Indication: EPSTEIN-BARR VIRUS INFECTION
     Dosage: 500 MG, 1X/DAY
     Route: 048
     Dates: start: 20170217
  3. LEVOTHYROXINE. [Concomitant]
     Active Substance: LEVOTHYROXINE
  4. MULTIVITAMIN [Concomitant]
     Active Substance: VITAMINS
  5. OMEGA 3S [Concomitant]
  6. LIOTHYRONINE [Concomitant]
     Active Substance: LIOTHYRONINE
  7. TURMERIC ROOT EXTRACT [Concomitant]

REACTIONS (6)
  - Constipation [Recovered/Resolved]
  - Off label use [Not Recovered/Not Resolved]
  - Abdominal distension [Recovered/Resolved]
  - Flatulence [Recovered/Resolved]
  - Urticaria [Recovered/Resolved]
  - Arthralgia [Not Recovered/Not Resolved]

NARRATIVE: CASE EVENT DATE: 20170217
